FAERS Safety Report 24585061 (Version 1)
Quarter: 2024Q4

REPORT INFORMATION
  Report Type: Spontaneous
  Country: US (occurrence: US)
  Receive Date: 20241106
  Receipt Date: 20241106
  Transmission Date: 20250114
  Serious: No
  Sender: LGM PHARMA SOLUTIONS, LLC
  Company Number: US-LGM Pharma Solutions, LLC-2164585

PATIENT
  Age: 51 Year
  Sex: Male

DRUGS (1)
  1. CHENODAL [Suspect]
     Active Substance: CHENODIOL
     Indication: Lipid metabolism disorder
     Dates: start: 20220208

REACTIONS (7)
  - Condition aggravated [Unknown]
  - Abdominal distension [Unknown]
  - Cognitive disorder [Unknown]
  - Mobility decreased [Unknown]
  - Decreased interest [Unknown]
  - Decreased appetite [Unknown]
  - Hypersomnia [Unknown]
